FAERS Safety Report 6571282-5 (Version None)
Quarter: 2010Q1

REPORT INFORMATION
  Report Type: 
  Country: None (occurrence: None)
  Receive Date: 20100129
  Receipt Date: 20100115
  Transmission Date: 20100710
  Serious: Yes (Hospitalization)
  Sender: FDA-Public Use
  Company Number: 1000011472

PATIENT
  Age: 87 Year
  Sex: Female

DRUGS (3)
  1. ESCITALOPRAM [Suspect]
     Dosage: (10 MG), ORAL
     Route: 048
     Dates: start: 20091210
  2. ACENOCOUMAROL [Suspect]
     Dosage: ORAL
     Route: 048
     Dates: start: 20090903
  3. ORFIDAL [Concomitant]

REACTIONS (2)
  - DRUG INTERACTION [None]
  - MELAENA [None]
